FAERS Safety Report 6633769-6 (Version None)
Quarter: 2010Q1

REPORT INFORMATION
  Report Type: 
  Country: None (occurrence: None)
  Receive Date: 20100315
  Receipt Date: 20100308
  Transmission Date: 20100710
  Serious: Yes (Hospitalization, Other)
  Sender: FDA-Public Use
  Company Number: US-RANBAXY-2009US-24507

PATIENT

DRUGS (4)
  1. ISOTRETINOIN [Suspect]
     Indication: DRUG USE FOR UNKNOWN INDICATION
     Dosage: 40 MG, QD
     Route: 048
     Dates: start: 20090501, end: 20090528
  2. PROTONIX [Concomitant]
     Indication: DYSPEPSIA
     Dosage: 40 MG, QD
     Route: 048
     Dates: start: 20090720
  3. DIFLUCAN [Concomitant]
     Indication: FUNGAL INFECTION
     Dosage: 150 MG, QD
     Route: 048
     Dates: start: 20091202, end: 20091202
  4. DIFLUCAN [Concomitant]
     Dosage: UNK
     Dates: start: 20100126, end: 20100126

REACTIONS (6)
  - BACK PAIN [None]
  - DIZZINESS [None]
  - DYSPEPSIA [None]
  - FUNGAL INFECTION [None]
  - PREGNANCY [None]
  - PRESYNCOPE [None]
